FAERS Safety Report 9100253 (Version 1)
Quarter: 2013Q1

REPORT INFORMATION
  Report Type: Spontaneous
  Country: US (occurrence: US)
  Receive Date: 20130212
  Receipt Date: 20130212
  Transmission Date: 20140127
  Serious: Yes (Death, Hospitalization, Other)
  Sender: FDA-Public Use
  Company Number: US-ASTELLAS-2013US001597

PATIENT
  Age: 85 None
  Sex: Female

DRUGS (1)
  1. TARCEVA [Suspect]
     Indication: LUNG CARCINOMA CELL TYPE UNSPECIFIED STAGE IV
     Dosage: UNK
     Route: 048

REACTIONS (4)
  - Hypoxia [Fatal]
  - Hypertension [Unknown]
  - Respiratory distress [Unknown]
  - Non-small cell lung cancer stage IV [Fatal]
